FAERS Safety Report 4677845-6 (Version None)
Quarter: 2005Q2

REPORT INFORMATION
  Report Type: 
  Country: None (occurrence: None)
  Receive Date: 20050527
  Receipt Date: 20050517
  Transmission Date: 20051028
  Serious: Yes (Other)
  Sender: FDA-Public Use
  Company Number: CIP05001156

PATIENT
  Age: 63 Year
  Sex: Female

DRUGS (1)
  1. ACTONEL (RISEDRONATE SODIUIM)TABLET, 35MG [Suspect]
     Indication: OSTEOPOROSIS
     Dosage: 35 MG ONCE WEEKLY, ORAL
     Route: 048
     Dates: start: 20031201, end: 20050425

REACTIONS (6)
  - ABSCESS JAW [None]
  - ASEPTIC NECROSIS BONE [None]
  - BONE DISORDER [None]
  - JAW DISORDER [None]
  - MOUTH ULCERATION [None]
  - ORAL INFECTION [None]
